FAERS Safety Report 6967380-4 (Version None)
Quarter: 2010Q3

REPORT INFORMATION
  Report Type: 
  Country: None (occurrence: None)
  Receive Date: 20100901
  Receipt Date: 20100618
  Transmission Date: 20110219
  Serious: Yes (Death)
  Sender: FDA-Public Use
  Company Number: GER/UKI/10/0013775

PATIENT
  Sex: Female

DRUGS (11)
  1. AMLODIPINE [Suspect]
     Indication: PRODUCT USED FOR UNKNOWN INDICATION
     Dosage: ORAL
     Route: 048
  2. LUCENTIS [Suspect]
     Indication: PRODUCT USED FOR UNKNOWN INDICATION
  3. ASPIRIN [Concomitant]
  4. CARBOCISTEINE (CARBOCISTEINE) [Concomitant]
  5. CLOPIDOGREL [Concomitant]
  6. FLUOXETINE [Concomitant]
  7. SALBUTAMOL (SALBUTAMOL) [Concomitant]
  8. SPIRONOLACTONE [Concomitant]
  9. SYMBICORT [Concomitant]
  10. TIOTROPIUM BROMIDE(TIOTROPIUM BROMIDE) [Concomitant]
  11. ZOPICLONE (ZOPICLONE) [Concomitant]

REACTIONS (2)
  - LEFT VENTRICULAR FAILURE [None]
  - MYOCARDIAL ISCHAEMIA [None]
